FAERS Safety Report 8678457 (Version 7)
Quarter: 2012Q4

REPORT INFORMATION
  Report Type: 
  Country: US (occurrence: US)
  Receive Date: 20120723
  Receipt Date: 20121205
  Transmission Date: 20130627
  Serious: Yes (Hospitalization, Disabling, Other)
  Sender: FDA-Public Use
  Company Number: PHEH2012US014047

PATIENT
  Age: 56 Year
  Sex: Female

DRUGS (14)
  1. RECLAST [Suspect]
     Indication: OSTEOPOROSIS
     Dosage: 5 mg, UNK
     Route: 042
     Dates: start: 20120628
  2. ERGOCALCIFEROL [Concomitant]
     Indication: VITAMIN D DEFICIENCY
     Dosage: 1 Capsule weekly
     Route: 048
     Dates: start: 20120719
  3. GLUCOSAMINE [Concomitant]
     Dosage: 500 mg, UNK
     Route: 048
     Dates: start: 20090910
  4. VITAMIN B12 [Concomitant]
     Dosage: UNK UKN, UNK
  5. ATENOLOL [Concomitant]
     Dosage: 25 mg, UNK
     Route: 048
  6. VITAMIN D [Concomitant]
     Dosage: UNK UKN, UNK
     Route: 048
  7. CRESTOR [Concomitant]
     Dosage: 5 mg, UNK
     Route: 048
  8. NAPROXEN [Concomitant]
     Dosage: 500 mg, BID
     Route: 048
  9. AMOXICILLIN + CLAVULANIC ACID [Concomitant]
     Dosage: 875-125 mg
     Route: 048
  10. METHYLPREDNISOLONE [Concomitant]
     Dosage: 4 mg, UNK
     Route: 048
  11. CALCIUM [Concomitant]
     Dosage: UNK UKN, UNK
  12. MELOXICAM [Concomitant]
     Dosage: 15 mg, UNK
     Route: 048
  13. PRISTIQ [Concomitant]
     Dosage: 50 mg, UNK
     Route: 048
     Dates: start: 20091214
  14. DHEA [Concomitant]
     Dosage: 15-50  mg
     Route: 048

REACTIONS (35)
  - Bone pain [Not Recovered/Not Resolved]
  - Muscular weakness [Not Recovered/Not Resolved]
  - Influenza like illness [Not Recovered/Not Resolved]
  - Pyrexia [Unknown]
  - Chills [Unknown]
  - Fatigue [Not Recovered/Not Resolved]
  - Malaise [Unknown]
  - Hypersensitivity [Unknown]
  - Arthralgia [Unknown]
  - Myalgia [Unknown]
  - Back pain [Unknown]
  - Rhinorrhoea [Unknown]
  - Headache [Unknown]
  - Nausea [Unknown]
  - Pain [Unknown]
  - Muscle spasms [Not Recovered/Not Resolved]
  - Vomiting [Unknown]
  - Rheumatoid arthritis [Unknown]
  - Epistaxis [Unknown]
  - Blister [Unknown]
  - Dysstasia [Unknown]
  - Musculoskeletal disorder [Unknown]
  - Cold sweat [Unknown]
  - Tenosynovitis stenosans [Unknown]
  - Stress [Unknown]
  - Fear [Unknown]
  - Muscle atrophy [Unknown]
  - Loss of consciousness [Unknown]
  - Nasopharyngitis [Unknown]
  - Insomnia [Unknown]
  - Asthenia [Unknown]
  - Diarrhoea [Unknown]
  - Musculoskeletal pain [Unknown]
  - Pain in extremity [Unknown]
  - Joint swelling [Unknown]
